FAERS Safety Report 4407672-6 (Version None)
Quarter: 2004Q3

REPORT INFORMATION
  Report Type: 
  Country: None (occurrence: None)
  Receive Date: 20040721
  Receipt Date: 20040715
  Transmission Date: 20050211
  Serious: Yes (Hospitalization)
  Sender: FDA-Public Use
  Company Number: 2004SE04008

PATIENT
  Age: 74 Year
  Sex: Male

DRUGS (3)
  1. SEROQUEL [Suspect]
     Indication: DEPRESSION
     Dosage: 50 MG DAILY PO
     Route: 048
  2. REMERON [Concomitant]
  3. RISPERIDONE [Concomitant]

REACTIONS (2)
  - CEREBRAL HAEMORRHAGE [None]
  - DEPRESSION [None]
